FAERS Safety Report 7678797-7 (Version None)
Quarter: 2011Q3

REPORT INFORMATION
  Report Type: 
  Country: None (occurrence: None)
  Receive Date: 20110811
  Receipt Date: 20110621
  Transmission Date: 20111222
  Serious: Yes (Life-Threatening, Hospitalization, Disabling)
  Sender: FDA-Public Use
  Company Number: US-GILEAD-2011-0040931

PATIENT
  Sex: Female
  Weight: 62.652 kg

DRUGS (22)
  1. TRUVADA [Suspect]
     Indication: HIV INFECTION
     Route: 048
     Dates: start: 20080911
  2. FAMOTIDINE [Concomitant]
     Indication: PRODUCT USED FOR UNKNOWN INDICATION
  3. GEMFIBROZIL [Concomitant]
     Indication: PRODUCT USED FOR UNKNOWN INDICATION
  4. TRIAMCINOLONE ACETONIDE [Concomitant]
     Indication: PRODUCT USED FOR UNKNOWN INDICATION
  5. ATRIPLA [Suspect]
     Indication: HIV INFECTION
     Route: 048
     Dates: start: 20080911, end: 20110302
  6. ATENOLOL [Concomitant]
     Indication: HYPERTENSION
  7. LISINOPRIL [Concomitant]
     Indication: HYPERTENSION
  8. ACYCLOVIR [Concomitant]
     Indication: GENITAL HERPES
  9. EFAVIRENZ [Suspect]
     Indication: HIV INFECTION
     Route: 048
     Dates: start: 20080911, end: 20110302
  10. VENLAFAXINE [Concomitant]
     Indication: DEPRESSION
  11. LORAZEPAM [Concomitant]
     Indication: PRODUCT USED FOR UNKNOWN INDICATION
  12. SIMVASTATIN [Concomitant]
     Indication: PRODUCT USED FOR UNKNOWN INDICATION
  13. METFORMIN HCL [Concomitant]
     Indication: TYPE 2 DIABETES MELLITUS
  14. TERCONAZOLE [Concomitant]
     Indication: FUNGAL INFECTION
  15. IBUPROFEN [Concomitant]
     Indication: SCIATICA
  16. BACTRIM [Concomitant]
     Indication: PROPHYLAXIS
  17. LAMOTRIGINE [Concomitant]
     Indication: DEPRESSION
  18. BUPROPION HCL [Concomitant]
     Indication: DEPRESSION
  19. ACETAMINOPHEN W/ CODEINE [Concomitant]
     Indication: SCIATICA
  20. TRAZODONE HCL [Concomitant]
     Indication: INSOMNIA
  21. METOCLOPRAMIDE [Concomitant]
     Indication: PRODUCT USED FOR UNKNOWN INDICATION
  22. ZYRTEC [Concomitant]
     Indication: SEASONAL ALLERGY

REACTIONS (3)
  - RENAL FAILURE ACUTE [None]
  - LACTIC ACIDOSIS [None]
  - SEPTIC SHOCK [None]
